FAERS Safety Report 5004185-8 (Version None)
Quarter: 2006Q2

REPORT INFORMATION
  Report Type: 
  Country: None (occurrence: None)
  Receive Date: 20060511
  Receipt Date: 20060502
  Transmission Date: 20061013
  Serious: Yes (Death, Life-Threatening, Hospitalization)
  Sender: FDA-Public Use
  Company Number: HQWYE772406DEC04

PATIENT
  Age: 44 Year
  Sex: Female
  Weight: 79.45 kg

DRUGS (19)
  1. EFFEXOR XR [Suspect]
     Indication: DEPRESSION
     Dosage: ORAL; SEE IMAGE
     Route: 048
     Dates: end: 20030501
  2. EFFEXOR XR [Suspect]
     Indication: DEPRESSION
     Dosage: ORAL; SEE IMAGE
     Route: 048
     Dates: start: 20030601, end: 20031001
  3. EFFEXOR XR [Suspect]
     Indication: DEPRESSION
     Dosage: ORAL; SEE IMAGE
     Route: 048
     Dates: start: 20031001, end: 20040601
  4. EFFEXOR XR [Suspect]
     Indication: DEPRESSION
     Dosage: ORAL; SEE IMAGE
     Route: 048
     Dates: start: 20040601, end: 20040701
  5. EFFEXOR XR [Suspect]
     Indication: DEPRESSION
     Dosage: ORAL; SEE IMAGE
     Route: 048
     Dates: start: 20040701, end: 20040901
  6. EFFEXOR XR [Suspect]
     Indication: DEPRESSION
     Dosage: ORAL; SEE IMAGE
     Route: 048
     Dates: start: 20040901, end: 20040901
  7. EFFEXOR XR [Suspect]
     Indication: DEPRESSION
     Dosage: ORAL; SEE IMAGE
     Route: 048
     Dates: start: 20040901, end: 20041101
  8. EFFEXOR XR [Suspect]
     Indication: DEPRESSION
     Dosage: ORAL; SEE IMAGE
     Route: 048
     Dates: start: 20041101, end: 20050101
  9. EFFEXOR XR [Suspect]
     Indication: DEPRESSION
     Dosage: ORAL; SEE IMAGE
     Route: 048
     Dates: start: 20050101, end: 20050201
  10. EFFEXOR XR [Suspect]
     Indication: DEPRESSION
     Dosage: ORAL; SEE IMAGE
     Route: 048
     Dates: start: 19981101
  11. ALCOHOL  (ETHANOL) [Suspect]
     Dosage: OVERDOSE AMOUNT, ORAL
     Route: 048
     Dates: start: 20051016, end: 20051016
  12. DOXEPIN HCL [Suspect]
  13. DURAGESIC-100 [Suspect]
     Dosage: OVERDOSE AMOUNT UNKNOWN, ORAL
     Route: 048
     Dates: start: 20051016, end: 20051016
  14. KLONOPIN [Suspect]
     Dosage: OVERDOSE AMOUNT ^40-50-6-^ 1 MG TABLETS
     Dates: start: 20051016, end: 20051016
  15. LITHIUM (LITHIUM) [Suspect]
  16. PROVIGIL [Concomitant]
  17. ALPRAZOLAM [Concomitant]
  18. LEXAPRO (LORAZEPAM) [Concomitant]
  19. PROZAC [Concomitant]

REACTIONS (53)
  - ABNORMAL DREAMS [None]
  - AFFECT LABILITY [None]
  - ALCOHOL USE [None]
  - ANGER [None]
  - ANHEDONIA [None]
  - ASTHENIA [None]
  - COGNITIVE DISORDER [None]
  - COMPLETED SUICIDE [None]
  - COMPULSIONS [None]
  - CONVULSION [None]
  - COORDINATION ABNORMAL [None]
  - CRYING [None]
  - DEHYDRATION [None]
  - DEPRESSED LEVEL OF CONSCIOUSNESS [None]
  - DISORIENTATION [None]
  - DISTURBANCE IN ATTENTION [None]
  - DRUG ABUSER [None]
  - DRUG INEFFECTIVE [None]
  - DRUG WITHDRAWAL SYNDROME [None]
  - DYSKINESIA [None]
  - DYSPHORIA [None]
  - EMOTIONAL DISORDER [None]
  - FLUSHING [None]
  - FORMICATION [None]
  - GUN SHOT WOUND [None]
  - HALLUCINATION, VISUAL [None]
  - HEMIPARESIS [None]
  - HOMICIDAL IDEATION [None]
  - HOSTILITY [None]
  - HYPERSOMNIA [None]
  - HYPERTENSION [None]
  - HYPOAESTHESIA FACIAL [None]
  - HYPOAESTHESIA ORAL [None]
  - IMPAIRED WORK ABILITY [None]
  - INFLUENZA LIKE ILLNESS [None]
  - IRRITABILITY [None]
  - MENTAL DISORDER [None]
  - MIGRAINE [None]
  - MULTIPLE DRUG OVERDOSE INTENTIONAL [None]
  - OBSESSIVE THOUGHTS [None]
  - PAIN [None]
  - PARAESTHESIA [None]
  - PERSONALITY CHANGE [None]
  - PHOTOPSIA [None]
  - PSYCHOTIC DISORDER [None]
  - SLEEP DISORDER [None]
  - SLUGGISHNESS [None]
  - SUICIDAL IDEATION [None]
  - SUICIDE ATTEMPT [None]
  - THINKING ABNORMAL [None]
  - UNEVALUABLE EVENT [None]
  - WEIGHT DECREASED [None]
  - WEIGHT INCREASED [None]
